FAERS Safety Report 9131501 (Version 1)
Quarter: 2013Q1

REPORT INFORMATION
  Report Type: Report from Study
  Country: US (occurrence: US)
  Receive Date: 20130301
  Receipt Date: 20130301
  Transmission Date: 20140127
  Serious: No
  Sender: FDA-Public Use
  Company Number: US-MYLANLABS-2012S1007094

PATIENT
  Age: 14 Year
  Sex: Male
  Weight: 61.24 kg

DRUGS (3)
  1. AMNESTEEM CAPSULES [Suspect]
     Indication: ACNE CYSTIC
     Route: 048
     Dates: start: 20111219, end: 20120330
  2. AMNESTEEM CAPSULES [Suspect]
     Indication: ACNE CYSTIC
     Route: 048
     Dates: start: 20111219, end: 20120330
  3. CLARAVIS [Suspect]

REACTIONS (4)
  - Mood altered [Recovered/Resolved]
  - Drug intolerance [Recovered/Resolved]
  - Depression [Recovered/Resolved]
  - Educational problem [Recovered/Resolved]
